FAERS Safety Report 9053584 (Version 2)
Quarter: 2013Q1

REPORT INFORMATION
  Report Type: Spontaneous
  Country: DE (occurrence: DE)
  Receive Date: 20130208
  Receipt Date: 20130301
  Transmission Date: 20140127
  Serious: Yes (Hospitalization)
  Sender: FDA-Public Use
  Company Number: DE-JNJFOC-20130116823

PATIENT
  Sex: Female
  Weight: 67 kg

DRUGS (2)
  1. REMICADE [Suspect]
     Indication: CROHN^S DISEASE
     Route: 042
     Dates: start: 20110927, end: 20130128
  2. AZATHIOPRIN [Concomitant]
     Indication: CROHN^S DISEASE
     Route: 065

REACTIONS (1)
  - Ovarian granulosa-theca cell tumour [Recovered/Resolved]
